FAERS Safety Report 9542883 (Version 1)
Quarter: 2013Q3

REPORT INFORMATION
  Report Type: Spontaneous
  Country: US (occurrence: US)
  Receive Date: 20130923
  Receipt Date: 20130923
  Transmission Date: 20140515
  Serious: No
  Sender: FDA-Public Use
  Company Number: US-PFIZER INC-2013270626

PATIENT
  Age: 72 Year
  Sex: Male
  Weight: 74.38 kg

DRUGS (7)
  1. CELEBREX [Suspect]
     Indication: PAIN
     Dosage: 200 MG, 2X/DAY
     Dates: start: 20130916
  2. METOPROLOL TARTRATE [Suspect]
     Indication: HYPERTENSION
     Dosage: SPLITTING THE TABLET OF 25 MG DAILY
  3. ALPRAZOLAM [Concomitant]
     Indication: ANXIETY
     Dosage: 0.5 MG, 2X/DAY
  4. TRAMADOL [Concomitant]
     Indication: PAIN
     Dosage: 50 MG, 3X/DAY
  5. TERAZOSIN [Concomitant]
     Indication: PROSTATOMEGALY
     Dosage: 10 MG, 1X/DAY
  6. HYDROCODONE [Concomitant]
     Indication: PAIN
     Dosage: 10 MG
  7. HYDROCODONE [Concomitant]
     Dosage: 7.5 MG

REACTIONS (2)
  - Wrong technique in drug usage process [Unknown]
  - Hypertension [Unknown]
